FAERS Safety Report 14769552 (Version 3)
Quarter: 2018Q4

REPORT INFORMATION
  Report Type: Report from Study
  Country: HU (occurrence: HU)
  Receive Date: 20180417
  Receipt Date: 20181001
  Transmission Date: 20190204
  Serious: Yes (Hospitalization)
  Sender: FDA-Public Use
  Company Number: HU-ROCHE-2106407

PATIENT
  Age: 27 Year
  Sex: Male
  Weight: 63 kg

DRUGS (10)
  1. COBIMETINIB. [Suspect]
     Active Substance: COBIMETINIB
     Indication: MALIGNANT MELANOMA
     Dosage: DATE OF MOST RECENT DOSE OF COBIMETINIB (3 TABLETS) PRIOR TO THE ADVERSE EVENT: 10/APR/2018
     Route: 048
     Dates: start: 20170627
  2. METHYLPREDNISOLONE ACEPONATE [Concomitant]
     Active Substance: METHYLPREDNISOLONE ACEPONATE
     Indication: BLISTER
     Route: 061
     Dates: start: 20170919
  3. PROSPAN COUGH SYRUP [Concomitant]
     Indication: COUGH
     Route: 065
     Dates: start: 20180129
  4. VEMURAFENIB. [Suspect]
     Active Substance: VEMURAFENIB
     Indication: MALIGNANT MELANOMA
     Dosage: TOTAL NUMBER OF TABLETS OF LAST VEMURAFENIB ADMINISTERED PRIOR TO THE ADVERSE EVENT: 4 TABLETS?DATE
     Route: 048
     Dates: start: 20170627
  5. PLACEBO [Suspect]
     Active Substance: UNSPECIFIED INGREDIENT
     Indication: MALIGNANT MELANOMA
     Dosage: MOS RECENT DOSE: 04/APR/2018
     Route: 042
     Dates: start: 20170726
  6. MOMETASON [Concomitant]
     Active Substance: MOMETASONE FUROATE
     Indication: SUNBURN
     Route: 061
     Dates: start: 20170905
  7. ASPIRIN. [Concomitant]
     Active Substance: ASPIRIN
     Indication: CEREBRAL INFARCTION
  8. ACC [Concomitant]
     Active Substance: ACETYLCYSTEINE
     Indication: COUGH
     Dosage: ACC 200
     Route: 065
     Dates: start: 20180116
  9. BISOPROLOL [Concomitant]
     Active Substance: BISOPROLOL
     Indication: HYPERTENSION
  10. FLOXAL [Concomitant]
     Active Substance: OFLOXACIN
     Indication: CONJUNCTIVITIS
     Dosage: 3 MG/ML
     Route: 065
     Dates: start: 20180306

REACTIONS (1)
  - Cerebrovascular accident [Recovered/Resolved]

NARRATIVE: CASE EVENT DATE: 20180411
